FAERS Safety Report 24382859 (Version 1)
Quarter: 2024Q3

REPORT INFORMATION
  Report Type: Spontaneous
  Country: US (occurrence: None)
  Receive Date: 20240930
  Receipt Date: 20240930
  Transmission Date: 20241017
  Serious: Yes (Hospitalization)
  Sender: Public
  Company Number: None

PATIENT
  Sex: Female

DRUGS (5)
  1. HUMIRA [Suspect]
     Active Substance: ADALIMUMAB
     Indication: Crohn^s disease
     Dosage: OTHER FREQUENCY : EVERY14DAYS ;?
     Route: 058
     Dates: start: 20191023
  2. CALCIUM TAB 600 MG [Concomitant]
  3. CEFDINIR [Concomitant]
     Active Substance: CEFDINIR
  4. LIPITOR TAB 20MG [Concomitant]
  5. NIFEDIPINE TAB 30MG ER [Concomitant]

REACTIONS (1)
  - Crohn^s disease [None]
